FAERS Safety Report 7087296-5 (Version None)
Quarter: 2010Q4

REPORT INFORMATION
  Report Type: 
  Country: None (occurrence: None)
  Receive Date: 20101107
  Receipt Date: 20100922
  Transmission Date: 20110411
  Serious: Yes (Other)
  Sender: FDA-Public Use
  Company Number: PHHY2010CA63415

PATIENT
  Sex: Female

DRUGS (1)
  1. SANDOSTATIN LAR [Suspect]
     Indication: OVARIAN NEOPLASM
     Dosage: 20 MG, EVERY 4 WEEKS
     Route: 030
     Dates: start: 20100921

REACTIONS (6)
  - BLOOD MAGNESIUM DECREASED [None]
  - OEDEMA PERIPHERAL [None]
  - PALMAR ERYTHEMA [None]
  - PARAESTHESIA [None]
  - TREMOR [None]
  - VOMITING [None]
